FAERS Safety Report 7481942-X (Version None)
Quarter: 2011Q2

REPORT INFORMATION
  Report Type: 
  Country: None (occurrence: None)
  Receive Date: 20110516
  Receipt Date: 20110511
  Transmission Date: 20111010
  Serious: Yes (Death, Other)
  Sender: FDA-Public Use
  Company Number: JP-ABBOTT-11P-087-0709658-00

PATIENT
  Sex: Male
  Weight: 60.8 kg

DRUGS (4)
  1. HUMIRA [Suspect]
     Route: 058
     Dates: start: 20110221, end: 20110221
  2. HUMIRA [Suspect]
     Indication: CROHN'S DISEASE
     Route: 058
     Dates: start: 20110221, end: 20110221
  3. PREDNISOLONE [Concomitant]
     Indication: CROHN'S DISEASE
     Route: 050
     Dates: start: 20110214, end: 20110226
  4. MESALAMINE [Concomitant]
     Indication: CROHN'S DISEASE
     Route: 048
     Dates: start: 20110214, end: 20110225

REACTIONS (24)
  - HAEMORRHAGE [None]
  - HAEMATEMESIS [None]
  - INTESTINAL PERFORATION [None]
  - ABDOMINAL PAIN LOWER [None]
  - GASTROINTESTINAL NECROSIS [None]
  - VITAL FUNCTIONS ABNORMAL [None]
  - MELAENA [None]
  - DISSEMINATED INTRAVASCULAR COAGULATION [None]
  - ASCITES [None]
  - ILEUS [None]
  - SEPSIS [None]
  - GENERAL PHYSICAL HEALTH DETERIORATION [None]
  - PERITONITIS [None]
  - CROHN'S DISEASE [None]
  - INTESTINAL MUCOSAL HYPERTROPHY [None]
  - INTESTINAL DILATATION [None]
  - PROTEIN TOTAL DECREASED [None]
  - ABDOMINAL RIGIDITY [None]
  - RENAL FAILURE [None]
  - INTESTINAL ISCHAEMIA [None]
  - GASTROINTESTINAL MOTILITY DISORDER [None]
  - ACIDOSIS [None]
  - COMPUTERISED TOMOGRAM ABDOMEN ABNORMAL [None]
  - ABDOMINAL DISTENSION [None]
